FAERS Safety Report 19459061 (Version 1)
Quarter: 2021Q2

REPORT INFORMATION
  Report Type: Spontaneous
  Country: US (occurrence: US)
  Receive Date: 20210624
  Receipt Date: 20210624
  Transmission Date: 20210717
  Serious: Yes (Other)
  Sender: FDA-Public Use
  Company Number: US-SA-2021SA207393

PATIENT
  Sex: Female

DRUGS (1)
  1. AUBAGIO [Suspect]
     Active Substance: TERIFLUNOMIDE
     Indication: MULTIPLE SCLEROSIS
     Dosage: 14 MG, QD
     Route: 048
     Dates: start: 20181227

REACTIONS (4)
  - Drug ineffective [Recovered/Resolved]
  - Arthritis [Unknown]
  - Multiple sclerosis relapse [Recovered/Resolved]
  - Musculoskeletal discomfort [Recovered/Resolved]
